FAERS Safety Report 11517895 (Version 1)
Quarter: 2015Q3

REPORT INFORMATION
  Report Type: Spontaneous
  Country: US (occurrence: US)
  Receive Date: 20150917
  Receipt Date: 20150917
  Transmission Date: 20151125
  Serious: No
  Sender: FDA-Public Use
  Company Number: US-RB-077174-15

PATIENT

DRUGS (2)
  1. MUCINEX MAXIMUM STRENGTH [Suspect]
     Active Substance: GUAIFENESIN
     Dosage: 1200MG. TIME OF LAST USE: 12:00 PM.,FREQUENCY UNK
     Route: 065
     Dates: start: 20150502
  2. MUCINEX MAXIMUM STRENGTH [Suspect]
     Active Substance: GUAIFENESIN
     Indication: PRODUCT USED FOR UNKNOWN INDICATION
     Dosage: 1200MG. ,FREQUENCY UNK
     Route: 065
     Dates: start: 20150430

REACTIONS (1)
  - Drug ineffective [Not Recovered/Not Resolved]
